FAERS Safety Report 5671380-4 (Version None)
Quarter: 2008Q1

REPORT INFORMATION
  Report Type: 
  Country: None (occurrence: None)
  Receive Date: 20080313
  Receipt Date: 20070327
  Transmission Date: 20080703
  Serious: Yes (Hospitalization)
  Sender: FDA-Public Use
  Company Number: MK-6032689

PATIENT
  Age: 54 Year
  Sex: Male

DRUGS (2)
  1. RANITIDINE [Suspect]
     Dosage: 4500 MG;ORAL
     Route: 048
  2. SIMVASTATIN [Suspect]
     Dosage: 600 MG;ORAL
     Route: 048

REACTIONS (3)
  - BLOOD PRESSURE DECREASED [None]
  - HAEMODYNAMIC INSTABILITY [None]
  - OVERDOSE [None]
